FAERS Safety Report 15117311 (Version 1)
Quarter: 2018Q3

REPORT INFORMATION
  Report Type: Spontaneous
  Country: FR (occurrence: FR)
  Receive Date: 20180706
  Receipt Date: 20180706
  Transmission Date: 20181010
  Serious: Yes (Other)
  Sender: FDA-Public Use
  Company Number: FR-MYLANLABS-2018M1047730

PATIENT
  Age: 55 Year
  Sex: Female
  Weight: 55 kg

DRUGS (1)
  1. PAROX?TINE MYLAN 20 MG, COMPRIM? PELLICUL? S?CABLE [Suspect]
     Active Substance: PAROXETINE
     Indication: ADJUSTMENT DISORDER WITH DEPRESSED MOOD
     Dosage: 1 DF, QD
     Route: 048
     Dates: start: 20171110, end: 20171122

REACTIONS (2)
  - Hypertensive crisis [Recovered/Resolved]
  - Headache [Recovered/Resolved]

NARRATIVE: CASE EVENT DATE: 20171120
